FAERS Safety Report 6745515-6 (Version None)
Quarter: 2010Q2

REPORT INFORMATION
  Report Type: 
  Country: None (occurrence: None)
  Receive Date: 20100528
  Receipt Date: 20100519
  Transmission Date: 20101027
  Serious: Yes (Hospitalization)
  Sender: FDA-Public Use
  Company Number: FR-WYE-G06148710

PATIENT
  Sex: Male

DRUGS (8)
  1. RELISTOR [Suspect]
     Route: 058
     Dates: start: 20091006, end: 20091018
  2. ACUPAN [Concomitant]
     Dosage: UNKNOWN
     Dates: start: 20091016
  3. SPASFON [Concomitant]
     Dosage: 2 AMPULES EVERY 48 HOURS
     Dates: start: 20090926
  4. OXYCODONE HCL [Concomitant]
     Dosage: 10 MG TOTAL DAILY
     Dates: start: 20090925, end: 20091004
  5. OXYCODONE HCL [Concomitant]
     Dosage: 15 MG TOTAL DAILY
     Dates: start: 20091005, end: 20091017
  6. OXYCODONE HCL [Concomitant]
     Dosage: 25 MG TOTAL DAILY
     Dates: start: 20091018, end: 20091019
  7. OXYCODONE HCL [Concomitant]
     Dosage: 20 MG TOTAL DAILY
     Dates: start: 20091020, end: 20091020
  8. OXYCODONE HCL [Concomitant]
     Dosage: 15 MG TOTAL DAILY
     Dates: start: 20091021

REACTIONS (3)
  - CONCOMITANT DISEASE PROGRESSION [None]
  - CONVULSION [None]
  - METASTASES TO BONE [None]
